FAERS Safety Report 10343415 (Version 1)
Quarter: 2014Q3

REPORT INFORMATION
  Report Type: Spontaneous
  Country: IT (occurrence: None)
  Receive Date: 20140723
  Receipt Date: 20140723
  Transmission Date: 20150326
  Serious: Yes (Hospitalization)
  Sender: FDA-Public Use
  Company Number: IT-H14001-14-00259

PATIENT
  Age: 75 Year
  Sex: Male

DRUGS (3)
  1. AMIODARONE (AMIODARONE) (UNKNOWN) [Suspect]
     Active Substance: AMIODARONE
     Indication: ATRIAL FIBRILLATION
  2. WARFARIN (WARFARIN) (UNKNOWN) (WARFARIN) [Concomitant]
  3. BETA BLOCKERS (BETA BLOCKING AGENT) (UNKNOWN) [Concomitant]

REACTIONS (3)
  - Acute respiratory distress syndrome [None]
  - Acute interstitial pneumonitis [None]
  - Hypotension [None]
